FAERS Safety Report 5179781-8 (Version None)
Quarter: 2006Q4

REPORT INFORMATION
  Report Type: 
  Country: None (occurrence: None)
  Receive Date: 20061211
  Receipt Date: 20061204
  Transmission Date: 20070319
  Serious: Yes (Other)
  Sender: FDA-Public Use
  Company Number: HQWYE396305DEC06

PATIENT
  Age: 62 Year
  Sex: Male

DRUGS (4)
  1. RAPAMUNE [Suspect]
     Indication: PROPHYLAXIS AGAINST TRANSPLANT REJECTION
     Dosage: 4 MG/FREQUENCY NOT PROVIDED
     Route: 048
     Dates: start: 20040414
  2. ALLOPURINOL [Concomitant]
  3. INDAPAMIDE [Concomitant]
  4. TEBETANE COMPUESTO (ALANINE/AMINOACETIC ACID/GLUTAMIC ACID/PYGEUM AFRI [Concomitant]

REACTIONS (1)
  - PROSTATE CANCER [None]
